APPROVED DRUG PRODUCT: FLUTICASONE PROPIONATE
Active Ingredient: FLUTICASONE PROPIONATE
Strength: 0.05MG/SPRAY
Dosage Form/Route: SPRAY, METERED;NASAL
Application: A217088 | Product #001
Applicant: AUROBINDO PHARMA LTD
Approved: May 10, 2024 | RLD: No | RS: No | Type: OTC